FAERS Safety Report 8788122 (Version 2)
Quarter: 2015Q1

REPORT INFORMATION
  Report Type: Report from Study
  Country: US (occurrence: US)
  Receive Date: 20120914
  Receipt Date: 20150325
  Transmission Date: 20150721
  Serious: Yes (Death)
  Sender: FDA-Public Use
  Company Number: US-ROCHE-1126370

PATIENT
  Sex: Female

DRUGS (23)
  1. AVASTIN [Suspect]
     Active Substance: BEVACIZUMAB
     Route: 042
  2. AVASTIN [Suspect]
     Active Substance: BEVACIZUMAB
     Route: 042
  3. TYLENOL [Concomitant]
     Active Substance: ACETAMINOPHEN
     Route: 048
  4. IRINOTECAN [Concomitant]
     Active Substance: IRINOTECAN
     Route: 042
  5. 5-FLUOROURACIL [Concomitant]
     Active Substance: FLUOROURACIL
     Route: 065
  6. 5-FLUOROURACIL [Concomitant]
     Active Substance: FLUOROURACIL
     Route: 042
  7. 5-FLUOROURACIL [Concomitant]
     Active Substance: FLUOROURACIL
     Route: 042
  8. CPT-11 [Concomitant]
     Active Substance: IRINOTECAN
     Route: 042
  9. EMEND [Concomitant]
     Active Substance: APREPITANT
     Route: 048
  10. LEUCOVORIN [Concomitant]
     Active Substance: LEUCOVORIN
     Route: 042
  11. ATIVAN [Concomitant]
     Active Substance: LORAZEPAM
     Route: 042
  12. 5-FLUOROURACIL [Concomitant]
     Active Substance: FLUOROURACIL
     Route: 042
  13. BENADRYL [Concomitant]
     Active Substance: DIPHENHYDRAMINE HYDROCHLORIDE
     Route: 042
  14. ZOFRAN [Concomitant]
     Active Substance: ONDANSETRON HYDROCHLORIDE
     Route: 042
  15. DECADRON [Concomitant]
     Active Substance: DEXAMETHASONE
     Route: 042
  16. ATROPIN [Concomitant]
     Route: 042
  17. OXALIPLATIN. [Concomitant]
     Active Substance: OXALIPLATIN
     Route: 042
  18. LEUCOVORIN [Concomitant]
     Active Substance: LEUCOVORIN
     Route: 042
  19. 5-FLUOROURACIL [Concomitant]
     Active Substance: FLUOROURACIL
     Route: 042
  20. AVASTIN [Suspect]
     Active Substance: BEVACIZUMAB
     Indication: COLON CANCER
     Route: 042
     Dates: start: 20071016
  21. 5-FLUOROURACIL [Concomitant]
     Active Substance: FLUOROURACIL
     Route: 042
  22. 5-FLUOROURACIL [Concomitant]
     Active Substance: FLUOROURACIL
     Route: 042
  23. AVASTIN [Suspect]
     Active Substance: BEVACIZUMAB
     Indication: COLON CANCER
     Route: 042

REACTIONS (5)
  - Death [Fatal]
  - Haematochezia [Unknown]
  - Throat tightness [None]
  - Myalgia [Unknown]
  - Hypoaesthesia oral [None]
